FAERS Safety Report 18581988 (Version 2)
Quarter: 2022Q1

REPORT INFORMATION
  Report Type: Spontaneous
  Country: FR (occurrence: FR)
  Receive Date: 20201205
  Receipt Date: 20220219
  Transmission Date: 20220423
  Serious: Yes (Hospitalization, Other)
  Sender: FDA-Public Use
  Company Number: FR-JNJFOC-20180903971

PATIENT
  Age: 23 Year
  Sex: Male
  Weight: 49 kg

DRUGS (31)
  1. DESLORATADINE [Suspect]
     Active Substance: DESLORATADINE
     Indication: Rash
     Dosage: 1 DOSAGE FORM, ONCE A DAY
     Route: 048
     Dates: start: 20090107
  2. CALCIUM CARBONATE [Suspect]
     Active Substance: CALCIUM CARBONATE
     Indication: Product used for unknown indication
     Dosage: 1 DOSAGE FORM, ONCE A DAY
     Route: 048
     Dates: start: 20081227
  3. EBASTINE [Suspect]
     Active Substance: EBASTINE
     Indication: Rash
     Dosage: UNK
     Route: 048
     Dates: start: 20090107
  4. FLUCONAZOLE [Suspect]
     Active Substance: FLUCONAZOLE
     Indication: Rash
     Dosage: 100 MILLIGRAM, ONCE A DAY
     Route: 048
     Dates: start: 20090106, end: 20090118
  5. FLUCONAZOLE [Suspect]
     Active Substance: FLUCONAZOLE
     Dosage: 200 MILLIGRAM, ONCE A DAY
     Route: 048
     Dates: start: 20090119, end: 20090130
  6. FLUCONAZOLE [Suspect]
     Active Substance: FLUCONAZOLE
     Dosage: 100 MILLIGRAM, ONCE A DAY
     Route: 048
     Dates: start: 20090119
  7. AERIUS (DESLORATADINE) [Suspect]
     Active Substance: DESLORATADINE
     Indication: Rash
     Dosage: 1 DOSAGE FORM, ONCE A DAY
     Route: 048
     Dates: start: 20090107
  8. ALANINE [Suspect]
     Active Substance: ALANINE
     Indication: Malnutrition
     Dosage: 4000 MILLILITER, ONCE A DAY
     Route: 041
     Dates: start: 20081228, end: 20090207
  9. ALANINE [Suspect]
     Active Substance: ALANINE
     Indication: Parenteral nutrition
     Dosage: UNK
     Route: 041
  10. CALCIUM CARBONATE\CHOLECALCIFEROL [Suspect]
     Active Substance: CALCIUM CARBONATE\CHOLECALCIFEROL
     Indication: Product used for unknown indication
     Dosage: 1 DOSAGE FORM, ONCE A DAY
     Route: 048
     Dates: start: 20081227
  11. LOVENOX [Suspect]
     Active Substance: ENOXAPARIN SODIUM
     Indication: Product used for unknown indication
     Dosage: 1 DOSAGE FORM, ONCE A DAY
     Route: 058
     Dates: start: 20081224
  12. METHYLPREDNISOLONE SODIUM SUCCINATE [Suspect]
     Active Substance: METHYLPREDNISOLONE SODIUM SUCCINATE
     Indication: Abscess
     Dosage: 60 MILLIGRAM
     Route: 048
     Dates: start: 20080811
  13. METHYLPREDNISOLONE SODIUM SUCCINATE [Suspect]
     Active Substance: METHYLPREDNISOLONE SODIUM SUCCINATE
     Indication: Crohn^s disease
     Dosage: 100 MILLIGRAM
     Route: 042
     Dates: start: 20081222, end: 20090112
  14. METHYLPREDNISOLONE SODIUM SUCCINATE [Suspect]
     Active Substance: METHYLPREDNISOLONE SODIUM SUCCINATE
     Dosage: 100 MILLIGRAM
     Route: 042
     Dates: start: 20090120
  15. ECONAZOLE NITRATE [Suspect]
     Active Substance: ECONAZOLE NITRATE
     Indication: Rash
     Dosage: 2 DOSAGE FORM
     Route: 061
     Dates: start: 20090114
  16. PRIMAXIN IV [Suspect]
     Active Substance: CILASTATIN SODIUM\IMIPENEM
     Indication: Abscess
     Dosage: UNK
     Route: 042
     Dates: start: 20081222, end: 20090112
  17. REMICADE [Suspect]
     Active Substance: INFLIXIMAB
     Indication: Crohn^s disease
     Dosage: 100 MILLIGRAM
     Route: 042
     Dates: start: 20090120
  18. SOLU-MEDROL [Suspect]
     Active Substance: METHYLPREDNISOLONE SODIUM SUCCINATE
     Indication: Crohn^s disease
     Dosage: 100 MILLIGRAM
     Route: 042
     Dates: start: 20080120
  19. SOLU-MEDROL [Suspect]
     Active Substance: METHYLPREDNISOLONE SODIUM SUCCINATE
     Dosage: 60 MILLIGRAM
     Route: 048
     Dates: start: 20080811
  20. SOLU-MEDROL [Suspect]
     Active Substance: METHYLPREDNISOLONE SODIUM SUCCINATE
     Dosage: 60 MILLIGRAM
     Route: 048
     Dates: start: 20090120
  21. SOLU-MEDROL [Suspect]
     Active Substance: METHYLPREDNISOLONE SODIUM SUCCINATE
     Dosage: 100 MILLIGRAM
     Route: 042
     Dates: start: 20090120
  22. FOLIC ACID [Suspect]
     Active Substance: FOLIC ACID
     Indication: Product used for unknown indication
     Dosage: 3 DOSAGE FORM, ONCE A DAY
     Route: 048
     Dates: start: 20081223
  23. AMINO ACIDS\DEXTROSE\ELECTROLYTES NOS [Suspect]
     Active Substance: AMINO ACIDS\DEXTROSE\ELECTROLYTES NOS
     Indication: Malnutrition
     Dosage: UNK
     Route: 065
  24. AMINO ACIDS\DEXTROSE\ELECTROLYTES NOS [Suspect]
     Active Substance: AMINO ACIDS\DEXTROSE\ELECTROLYTES NOS
     Indication: Parenteral nutrition
     Dosage: 4000 MILLILITER, ONCE A DAY
     Route: 041
     Dates: start: 20081228, end: 20090207
  25. CILASTATIN SODIUM\IMIPENEM [Suspect]
     Active Substance: CILASTATIN SODIUM\IMIPENEM
     Indication: Abscess
     Dosage: UNK
     Route: 042
     Dates: start: 20081222, end: 20090112
  26. TRANXENE [Suspect]
     Active Substance: CLORAZEPATE DIPOTASSIUM
     Indication: Anxiety
     Dosage: 1 DOSAGE FORM, ONCE A DAY
     Route: 042
     Dates: start: 20081222, end: 20090123
  27. VANCOMYCIN HYDROCHLORIDE [Suspect]
     Active Substance: VANCOMYCIN HYDROCHLORIDE
     Indication: Abscess
     Dosage: 32 MILLIGRAM
     Route: 065
     Dates: start: 20081220, end: 20081220
  28. VANCOMYCIN HYDROCHLORIDE [Suspect]
     Active Substance: VANCOMYCIN HYDROCHLORIDE
     Dosage: 2 GRAM, ONCE A DAY
     Route: 042
     Dates: start: 20081222, end: 20090112
  29. VANCOMYCIN HYDROCHLORIDE [Suspect]
     Active Substance: VANCOMYCIN HYDROCHLORIDE
     Dosage: 32 GRAM
     Route: 042
     Dates: start: 20081220, end: 20090112
  30. CALCIUM CARBONATE\CITRIC ACID MONOHYDRATE [Suspect]
     Active Substance: CALCIUM CARBONATE\CITRIC ACID MONOHYDRATE
     Indication: Product used for unknown indication
     Dosage: UNK UNK, ONCE A DAY
     Route: 048
     Dates: start: 20081227
  31. CALCIUM CARBONATE\CHOLECALCIFEROL [Suspect]
     Active Substance: CALCIUM CARBONATE\CHOLECALCIFEROL
     Indication: Product used for unknown indication
     Dosage: UNK UNK, ONCE A DAY
     Route: 048

REACTIONS (3)
  - Hepatic cytolysis [Recovering/Resolving]
  - Weight decreased [Unknown]
  - Fungal test positive [Unknown]

NARRATIVE: CASE EVENT DATE: 20090106
